FAERS Safety Report 23875086 (Version 1)
Quarter: 2024Q2

REPORT INFORMATION
  Report Type: Spontaneous
  Country: US (occurrence: None)
  Receive Date: 20240520
  Receipt Date: 20240520
  Transmission Date: 20240716
  Serious: Yes (Hospitalization)
  Sender: FDA-Public Use
  Company Number: None

PATIENT
  Age: 96 Year
  Sex: Male
  Weight: 94 kg

DRUGS (1)
  1. IBUPROFEN [Suspect]
     Active Substance: IBUPROFEN
     Dosage: FREQUENCY : AS NEEDED;?
     Dates: start: 20240403, end: 20240404

REACTIONS (1)
  - Angioedema [None]

NARRATIVE: CASE EVENT DATE: 20240403
